FAERS Safety Report 25938216 (Version 1)
Quarter: 2025Q4

REPORT INFORMATION
  Report Type: Spontaneous
  Country: CN (occurrence: CN)
  Receive Date: 20251018
  Receipt Date: 20251018
  Transmission Date: 20260118
  Serious: Yes (Death, Life-Threatening, Other)
  Sender: AMGEN
  Company Number: CN-AMGEN-CHNSP2025205911

PATIENT

DRUGS (1)
  1. PANITUMUMAB [Suspect]
     Active Substance: PANITUMUMAB
     Indication: Product used for unknown indication
     Dosage: UNK
     Route: 040

REACTIONS (61)
  - Death [Fatal]
  - Cardio-respiratory arrest [Fatal]
  - Interstitial lung disease [Fatal]
  - Cardiopulmonary failure [Unknown]
  - Hepatic failure [Unknown]
  - Deep vein thrombosis [Unknown]
  - Neutropenia [Unknown]
  - Embolism [Unknown]
  - Cholangitis [Unknown]
  - Neurotoxicity [Unknown]
  - Thrombocytopenia [Unknown]
  - Pneumonitis [Unknown]
  - Acute polyneuropathy [Unknown]
  - Hyperbilirubinaemia [Unknown]
  - Pneumatosis intestinalis [Unknown]
  - Myelosuppression [Unknown]
  - Infarction [Unknown]
  - Urinoma [Unknown]
  - Neuropathy peripheral [Unknown]
  - Stoma site ulcer [Unknown]
  - Nail bed inflammation [Unknown]
  - Dermatitis infected [Unknown]
  - Infusion related reaction [Unknown]
  - Rash [Unknown]
  - Diarrhoea [Unknown]
  - Dermatitis acneiform [Unknown]
  - Hypomagnesaemia [Unknown]
  - Nausea [Unknown]
  - Skin toxicity [Unknown]
  - Eyelash thickening [Unknown]
  - Vomiting [Unknown]
  - Stomatitis [Unknown]
  - Paronychia [Unknown]
  - Dry skin [Unknown]
  - Decreased appetite [Unknown]
  - Pyrexia [Unknown]
  - Anaemia [Unknown]
  - Pruritus [Unknown]
  - Asthenia [Unknown]
  - Rash pustular [Unknown]
  - Xerosis [Unknown]
  - Acne pustular [Unknown]
  - Growth of eyelashes [Unknown]
  - Trichomegaly [Unknown]
  - Xeroderma [Unknown]
  - Venous thrombosis [Unknown]
  - Ectropion [Unknown]
  - Eyelash changes [Unknown]
  - Adjusted calcium decreased [Unknown]
  - Mucocutaneous rash [Unknown]
  - Dermatophytosis of nail [Unknown]
  - Rash follicular [Unknown]
  - Mucosal inflammation [Unknown]
  - Cutaneous symptom [Unknown]
  - Hypersensitivity [Unknown]
  - Ocular hyperaemia [Unknown]
  - Jaundice [Unknown]
  - Hepatic function abnormal [Unknown]
  - Peripheral sensory neuropathy [Unknown]
  - Dysgeusia [Unknown]
  - Eye irritation [Unknown]
